FAERS Safety Report 4847197-7 (Version None)
Quarter: 2005Q4

REPORT INFORMATION
  Report Type: 
  Country: None (occurrence: None)
  Receive Date: 20051207
  Receipt Date: 20041223
  Transmission Date: 20060501
  Serious: Yes (Hospitalization, Other)
  Sender: FDA-Public Use
  Company Number: US-MERCK-0412USA02877

PATIENT
  Age: 53 Year
  Sex: Male
  Weight: 105 kg

DRUGS (4)
  1. VIOXX [Suspect]
     Indication: ARTHRITIS
     Route: 048
     Dates: start: 20010301, end: 20031101
  2. VIOXX [Suspect]
     Route: 048
     Dates: end: 20010306
  3. VIOXX [Suspect]
     Indication: SHOULDER PAIN
     Route: 048
     Dates: start: 20010301, end: 20031101
  4. VIOXX [Suspect]
     Route: 048
     Dates: end: 20010306

REACTIONS (8)
  - BLOOD TRIGLYCERIDES INCREASED [None]
  - CARDIAC DISORDER [None]
  - CARDIAC FAILURE CONGESTIVE [None]
  - CHEST PAIN [None]
  - CORONARY ARTERY DISEASE [None]
  - HYPERTENSION [None]
  - LIPIDS INCREASED [None]
  - MYOCARDIAL INFARCTION [None]
